FAERS Safety Report 13383457 (Version 1)
Quarter: 2017Q1

REPORT INFORMATION
  Report Type: Spontaneous
  Country: FR (occurrence: FR)
  Receive Date: 20170329
  Receipt Date: 20170329
  Transmission Date: 20170429
  Serious: Yes (Hospitalization)
  Sender: FDA-Public Use
  Company Number: FR-ASTRAZENECA-2017SE30412

PATIENT
  Age: 25632 Day
  Sex: Male

DRUGS (13)
  1. DOLIPRANE [Concomitant]
     Active Substance: ACETAMINOPHEN
  2. LANTUS [Concomitant]
     Active Substance: INSULIN GLARGINE
  3. ADENURIC [Suspect]
     Active Substance: FEBUXOSTAT
     Indication: GOUT
     Route: 065
     Dates: start: 20170228, end: 20170304
  4. ATACAND [Suspect]
     Active Substance: CANDESARTAN CILEXETIL
     Indication: HYPERTENSION
     Route: 048
     Dates: start: 20170304, end: 20170307
  5. SIMVASTATINE  ARROW [Suspect]
     Active Substance: SIMVASTATIN
     Indication: HYPERCHOLESTEROLAEMIA
     Dosage: 20.0MG UNKNOWN
     Route: 065
     Dates: start: 2015, end: 20170306
  6. FOSAMAX [Concomitant]
     Active Substance: ALENDRONATE SODIUM
  7. COLCHICINE. [Suspect]
     Active Substance: COLCHICINE
     Indication: GOUT
     Route: 065
     Dates: start: 20170213, end: 20170304
  8. KARDEGIC [Concomitant]
     Active Substance: ASPIRIN LYSINE
  9. NOVORAPID [Concomitant]
     Active Substance: INSULIN ASPART
  10. MIMPARA [Concomitant]
     Active Substance: CINACALCET HYDROCHLORIDE
  11. PANTOPRAZOLE [Concomitant]
     Active Substance: PANTOPRAZOLE SODIUM
  12. IPERTEN [Concomitant]
     Active Substance: MANIDIPINE
  13. NEBIVOLOL. [Concomitant]
     Active Substance: NEBIVOLOL

REACTIONS (1)
  - Rhabdomyolysis [Recovering/Resolving]

NARRATIVE: CASE EVENT DATE: 20170306
